FAERS Safety Report 25585075 (Version 4)
Quarter: 2025Q3

REPORT INFORMATION
  Report Type: Spontaneous
  Country: BR (occurrence: BR)
  Receive Date: 20250721
  Receipt Date: 20250918
  Transmission Date: 20251021
  Serious: Yes (Other)
  Sender: DR REDDYS
  Company Number: BR-RDY-BRA/2025/07/010612

PATIENT
  Sex: Female

DRUGS (3)
  1. METOPROLOL SUCCINATE [Suspect]
     Active Substance: METOPROLOL SUCCINATE
     Indication: Tachycardia
     Route: 048
     Dates: start: 202507
  2. CAPTOPRIL [Concomitant]
     Active Substance: CAPTOPRIL
     Indication: Hypertension
     Route: 065
     Dates: start: 2015
  3. ROSUVASTATIN CALCIUM [Concomitant]
     Active Substance: ROSUVASTATIN CALCIUM
     Indication: Blood cholesterol abnormal
     Dosage: 1 TABLET AT NIGHT
     Route: 065
     Dates: start: 2018

REACTIONS (7)
  - Arrhythmia [Not Recovered/Not Resolved]
  - Cardiac disorder [Not Recovered/Not Resolved]
  - Drug ineffective [Unknown]
  - Dental operation [Unknown]
  - Tachycardia [Unknown]
  - Peripheral coldness [Unknown]
  - Speech disorder [Unknown]

NARRATIVE: CASE EVENT DATE: 20250710
